FAERS Safety Report 6939413-2 (Version None)
Quarter: 2010Q3

REPORT INFORMATION
  Report Type: 
  Country: None (occurrence: None)
  Receive Date: 20100819
  Receipt Date: 20100809
  Transmission Date: 20110219
  Serious: Yes (Other)
  Sender: FDA-Public Use
  Company Number: 2010SP043377

PATIENT
  Age: 24 Year
  Sex: Male
  Weight: 70 kg

DRUGS (4)
  1. ROCURONIUM BROMIDE [Suspect]
     Indication: ENDOTRACHEAL INTUBATION
     Dosage: 25 MG ; 25 MG
  2. RINGERS SOLUTION [Concomitant]
  3. FENTANYL CITRATE [Concomitant]
  4. PROPOFOL [Concomitant]

REACTIONS (1)
  - THROMBOPHLEBITIS SUPERFICIAL [None]
